FAERS Safety Report 7582619-2 (Version None)
Quarter: 2011Q2

REPORT INFORMATION
  Report Type: 
  Country: None (occurrence: None)
  Receive Date: 20110630
  Receipt Date: 20110620
  Transmission Date: 20111010
  Serious: Yes (Hospitalization)
  Sender: FDA-Public Use
  Company Number: US-ELI_LILLY_AND_COMPANY-US201106006001

PATIENT
  Age: 77 Year
  Sex: Male

DRUGS (3)
  1. HUMULIN 70/30 [Suspect]
     Indication: DIABETES MELLITUS
     Dosage: 40 U, EACH MORNING
     Dates: start: 19910101, end: 20110301
  2. HUMULIN N [Suspect]
     Indication: DIABETES MELLITUS
     Dosage: 15 U, BID
     Dates: start: 20110301
  3. HUMULIN 70/30 [Suspect]
     Dosage: 30 U, OTHER
     Dates: start: 19910101, end: 20110301

REACTIONS (3)
  - LOCALISED INFECTION [None]
  - OEDEMA PERIPHERAL [None]
  - CARDIAC PACEMAKER INSERTION [None]
